FAERS Safety Report 22143208 (Version 1)
Quarter: 2023Q1

REPORT INFORMATION
  Report Type: Spontaneous
  Country: US (occurrence: US)
  Receive Date: 20230327
  Receipt Date: 20230327
  Transmission Date: 20230417
  Serious: Yes (Other)
  Sender: FDA-Public Use
  Company Number: US-JNJFOC-20230361670

PATIENT
  Age: 13 Year
  Sex: Male

DRUGS (5)
  1. TOPIRAMATE [Suspect]
     Active Substance: TOPIRAMATE
     Indication: Weight decreased
     Route: 048
     Dates: start: 201107
  2. TOPIRAMATE [Suspect]
     Active Substance: TOPIRAMATE
     Indication: Affective disorder
     Dosage: BEGIN 25 MG, SLOWLY INCREASING TO 50 MG TWICE DAILY
     Route: 048
     Dates: start: 20130404
  3. TOPIRAMATE [Suspect]
     Active Substance: TOPIRAMATE
     Indication: Attention deficit hyperactivity disorder
     Dosage: INCREASED TO 250 MG
     Route: 048
     Dates: start: 20130508
  4. TOPIRAMATE [Suspect]
     Active Substance: TOPIRAMATE
     Route: 048
     Dates: start: 20131127
  5. TOPIRAMATE [Suspect]
     Active Substance: TOPIRAMATE
     Route: 048
     Dates: start: 20140409, end: 2014

REACTIONS (5)
  - Hallucination [Recovered/Resolved]
  - Panic attack [Unknown]
  - Delusion [Recovered/Resolved]
  - Anger [Recovering/Resolving]
  - Off label use [Unknown]

NARRATIVE: CASE EVENT DATE: 20130404
